FAERS Safety Report 14175967 (Version 1)
Quarter: 2017Q4

REPORT INFORMATION
  Report Type: Spontaneous
  Country: US (occurrence: None)
  Receive Date: 20171109
  Receipt Date: 20171109
  Transmission Date: 20180321
  Serious: No
  Sender: FDA-Public Use
  Company Number: None

PATIENT
  Age: 18 Year
  Sex: Female

DRUGS (1)
  1. HUMIRA [Suspect]
     Active Substance: ADALIMUMAB
     Dosage: 40MG/0.8ML ML  INJECT ONE PEN (40 MG)
     Route: 058
     Dates: start: 20170126

REACTIONS (1)
  - Rash [None]

NARRATIVE: CASE EVENT DATE: 20171109
